FAERS Safety Report 24333555 (Version 1)
Quarter: 2024Q3

REPORT INFORMATION
  Report Type: Spontaneous
  Country: JP (occurrence: JP)
  Receive Date: 20240918
  Receipt Date: 20240918
  Transmission Date: 20241017
  Serious: Yes (Other)
  Sender: ELI LILLY AND CO
  Company Number: JP-ELI_LILLY_AND_COMPANY-JP202409006569

PATIENT
  Age: 88 Year
  Sex: Male

DRUGS (1)
  1. TRULICITY [Suspect]
     Active Substance: DULAGLUTIDE
     Indication: Glycosuria
     Dosage: UNK
     Route: 058

REACTIONS (8)
  - Cerebral haemorrhage [Unknown]
  - Nephrolithiasis [Unknown]
  - Migraine [Unknown]
  - Off label use [Unknown]
  - Pain [Unknown]
  - Blood glucose increased [Unknown]
  - Intestinal dilatation [Unknown]
  - Vomiting [Unknown]
